FAERS Safety Report 5978951-6 (Version None)
Quarter: 2008Q4

REPORT INFORMATION
  Report Type: 
  Country: None (occurrence: None)
  Receive Date: 20081204
  Receipt Date: 20080127
  Transmission Date: 20090506
  Serious: No
  Sender: FDA-Public Use
  Company Number: US-ABBOTT-08P-163-0435462-00

PATIENT
  Sex: Male
  Weight: 102.3 kg

DRUGS (5)
  1. TRICOR [Suspect]
     Indication: BLOOD CHOLESTEROL INCREASED
     Route: 048
     Dates: start: 20070101, end: 20080126
  2. INEGY [Concomitant]
     Indication: BLOOD CHOLESTEROL INCREASED
     Route: 048
  3. CITALOPRAM HYDROBROMIDE [Concomitant]
     Indication: DEPRESSION
     Route: 048
     Dates: start: 20030101
  4. CITALOPRAM HYDROBROMIDE [Concomitant]
     Indication: ANXIETY
  5. NAPROXIN [Concomitant]
     Indication: ARTHRITIS
     Route: 048
     Dates: start: 20070601

REACTIONS (2)
  - DIZZINESS [None]
  - VISUAL IMPAIRMENT [None]
